FAERS Safety Report 4639154-0 (Version None)
Quarter: 2005Q2

REPORT INFORMATION
  Report Type: 
  Country: None (occurrence: None)
  Receive Date: 20050418
  Receipt Date: 20050408
  Transmission Date: 20051028
  Serious: Yes (Other)
  Sender: FDA-Public Use
  Company Number: 2005-03-0143

PATIENT
  Age: 38 Year
  Sex: Male

DRUGS (2)
  1. PEG-INTRON [Suspect]
     Indication: HEPATITIS C VIRUS
     Dosage: 150 MCG QE SUBCUTANEOUS
     Route: 058
     Dates: start: 20041113
  2. REBETOL [Suspect]
     Indication: HEPATITIS C VIRUS
     Dosage: 1200 MG QD ORAL
     Route: 048
     Dates: start: 20041113

REACTIONS (4)
  - DERMATITIS ALLERGIC [None]
  - ECZEMA [None]
  - INJECTION SITE REACTION [None]
  - PHARMACEUTICAL PRODUCT COMPLAINT [None]
